FAERS Safety Report 9184018 (Version 1)
Quarter: 2013Q1

REPORT INFORMATION
  Report Type: Spontaneous
  Country: US (occurrence: US)
  Receive Date: 20130322
  Receipt Date: 20130322
  Transmission Date: 20140127
  Serious: Yes (Hospitalization)
  Sender: FDA-Public Use
  Company Number: US-BRISTOL-MYERS SQUIBB COMPANY-16700833

PATIENT
  Age: 51 Year
  Sex: Male

DRUGS (6)
  1. ERBITUX [Suspect]
     Indication: HEAD AND NECK CANCER STAGE IV
  2. CARBOPLATIN [Suspect]
     Indication: HEAD AND NECK CANCER STAGE IV
  3. ENDOCET [Concomitant]
     Dosage: 1DF = 10/325, TABS
  4. ZOFRAN [Concomitant]
  5. COMPAZINE [Concomitant]
  6. FENTANYL PATCH [Concomitant]

REACTIONS (2)
  - Infusion related reaction [Recovering/Resolving]
  - Hypokalaemia [Unknown]
